FAERS Safety Report 25541390 (Version 1)
Quarter: 2025Q3

REPORT INFORMATION
  Report Type: Spontaneous
  Country: GB (occurrence: GB)
  Receive Date: 20250711
  Receipt Date: 20250711
  Transmission Date: 20251020
  Serious: Yes (Other)
  Sender: ORGANON
  Company Number: GB-Accord-492699

PATIENT
  Age: 51 Year
  Sex: Male

DRUGS (3)
  1. MIRTAZAPINE [Suspect]
     Active Substance: MIRTAZAPINE
  2. QUININE [Suspect]
     Active Substance: QUININE
  3. IBUPROFEN [Suspect]
     Active Substance: IBUPROFEN

REACTIONS (2)
  - Blindness [Recovering/Resolving]
  - Intentional overdose [Unknown]
